FAERS Safety Report 20920408 (Version 1)
Quarter: 2022Q2

REPORT INFORMATION
  Report Type: Spontaneous
  Country: US (occurrence: None)
  Receive Date: 20220606
  Receipt Date: 20220606
  Transmission Date: 20220721
  Serious: Yes (Life-Threatening, Hospitalization, Other)
  Sender: FDA-Public Use
  Company Number: None

PATIENT
  Age: 72 Year
  Sex: Male
  Weight: 62 kg

DRUGS (1)
  1. INSULIN GLARGINE [Suspect]
     Active Substance: INSULIN GLARGINE
     Indication: Diabetes mellitus
     Dosage: OTHER STRENGTH : 100UNT/ML;?FREQUENCY : DAILY;?
     Route: 048
     Dates: start: 20141027, end: 20220502

REACTIONS (4)
  - Hypoglycaemia [None]
  - Seizure [None]
  - Lymphadenitis [None]
  - Cholelithiasis [None]

NARRATIVE: CASE EVENT DATE: 20220427
